FAERS Safety Report 11194436 (Version 2)
Quarter: 2015Q3

REPORT INFORMATION
  Report Type: Report from Study
  Country: MX (occurrence: MX)
  Receive Date: 20150616
  Receipt Date: 20150717
  Transmission Date: 20151125
  Serious: Yes (Other)
  Sender: FDA-Public Use
  Company Number: PHHY2015MX069581

PATIENT
  Sex: Female

DRUGS (3)
  1. EXFORGE [Suspect]
     Active Substance: AMLODIPINE BESYLATE\VALSARTAN
     Indication: HYPERTENSION
     Dosage: 1 DF, QD (STARTED 3 YEARS AGO APPROXIMATELY)
     Route: 048
  2. TENORMIN [Concomitant]
     Active Substance: ATENOLOL
     Indication: BLOOD PRESSURE MEASUREMENT
     Dosage: 1 DF, UNK (STARTED 3 YEARS AGO)
     Route: 065
  3. IQUIX [Concomitant]
     Active Substance: LEVOFLOXACIN
     Indication: BLOOD PRESSURE MEASUREMENT
     Dosage: 1 DF, BID (STARTED 2 YEARS AGO)
     Route: 048

REACTIONS (3)
  - Colitis [Recovered/Resolved]
  - Dementia Alzheimer^s type [Recovering/Resolving]
  - Memory impairment [Unknown]
